FAERS Safety Report 18401522 (Version 1)
Quarter: 2020Q4

REPORT INFORMATION
  Report Type: Spontaneous
  Country: US (occurrence: US)
  Receive Date: 20201019
  Receipt Date: 20201019
  Transmission Date: 20210114
  Serious: Yes (Other)
  Sender: FDA-Public Use
  Company Number: US-TEVA-2020-US-1838495

PATIENT
  Sex: Female

DRUGS (3)
  1. FENTANYL. [Suspect]
     Active Substance: FENTANYL
     Route: 065
  2. COCAINE [Suspect]
     Active Substance: COCAINE
     Route: 065
  3. HEROIN [Suspect]
     Active Substance: DIAMORPHINE
     Route: 065

REACTIONS (4)
  - Toxicity to various agents [Unknown]
  - Loss of employment [Unknown]
  - Overdose [Unknown]
  - Substance use disorder [Unknown]
